FAERS Safety Report 20756004 (Version 1)
Quarter: 2022Q2

REPORT INFORMATION
  Report Type: Spontaneous
  Country: US (occurrence: US)
  Receive Date: 20220427
  Receipt Date: 20220427
  Transmission Date: 20220720
  Serious: Yes (Death, Life-Threatening, Hospitalization)
  Sender: FDA-Public Use
  Company Number: US-AVET LIFESCIENCES LTD-2022-AVET-000069

PATIENT
  Age: 68 Year
  Sex: Female

DRUGS (2)
  1. METHIMAZOLE [Suspect]
     Active Substance: METHIMAZOLE
     Indication: Basedow^s disease
     Dosage: 10 MILLIGRAM, BID
  2. METHIMAZOLE [Suspect]
     Active Substance: METHIMAZOLE
     Dosage: 10 MILLIGRAM, TID

REACTIONS (8)
  - Multiple organ dysfunction syndrome [Fatal]
  - Agranulocytosis [Fatal]
  - Septic shock [Fatal]
  - Pancytopenia [Fatal]
  - Escherichia infection [Fatal]
  - Pseudomonas infection [Fatal]
  - Aspergillus infection [Fatal]
  - Mucormycosis [Fatal]
